FAERS Safety Report 4752992-9 (Version None)
Quarter: 2005Q3

REPORT INFORMATION
  Report Type: 
  Country: None (occurrence: None)
  Receive Date: 20050826
  Receipt Date: 20050601
  Transmission Date: 20060218
  Serious: Yes (Other)
  Sender: FDA-Public Use
  Company Number: US-MERCK-0506USA00694

PATIENT
  Age: 48 Year
  Sex: Male
  Weight: 142 kg

DRUGS (7)
  1. VIOXX [Suspect]
     Indication: OSTEOARTHRITIS
     Route: 048
     Dates: start: 20010629, end: 20040930
  2. VIOXX [Suspect]
     Indication: PAIN
     Route: 048
     Dates: start: 20010629, end: 20040930
  3. ASPIRIN [Concomitant]
     Indication: ANTICOAGULANT THERAPY
     Route: 065
     Dates: start: 20010101
  4. TYLENOL [Concomitant]
     Indication: ARTHRITIS
     Route: 065
     Dates: start: 19960101
  5. ALEVE [Concomitant]
     Indication: ARTHRITIS
     Route: 065
     Dates: start: 19960101
  6. PYRIDOXINE [Concomitant]
     Indication: ARTHRITIS
     Route: 065
     Dates: start: 19990501
  7. GLUCOSAMINE [Concomitant]
     Indication: ARTHRITIS
     Route: 065
     Dates: start: 19990501

REACTIONS (13)
  - ANGINA PECTORIS [None]
  - CELLULITIS [None]
  - CORONARY ARTERY ATHEROSCLEROSIS [None]
  - ERYSIPELAS [None]
  - EXOSTOSIS [None]
  - FOLATE DEFICIENCY [None]
  - HYPERCHOLESTEROLAEMIA [None]
  - HYPERTENSION [None]
  - INTERVERTEBRAL DISC PROTRUSION [None]
  - MYOCARDIAL INFARCTION [None]
  - NECK PAIN [None]
  - SHOULDER PAIN [None]
  - SINUSITIS [None]
